FAERS Safety Report 9405557 (Version 1)
Quarter: 2013Q3

REPORT INFORMATION
  Report Type: Spontaneous
  Country: JP (occurrence: JP)
  Receive Date: 20130717
  Receipt Date: 20130717
  Transmission Date: 20140515
  Serious: Yes (Other)
  Sender: FDA-Public Use
  Company Number: JP-ROXANE LABORATORIES, INC.-2013-RO-01160RO

PATIENT
  Age: 60 Year
  Sex: Male

DRUGS (8)
  1. CYCLOPHOSPHAMIDE TABLETS USP [Suspect]
     Indication: B-CELL LYMPHOMA
  2. CYCLOPHOSPHAMIDE TABLETS USP [Suspect]
     Dosage: 50 MG
  3. CLARITHROMYCIN [Suspect]
     Indication: B-CELL LYMPHOMA RECURRENT
     Dosage: 800 MG
  4. PREDNISOLONE [Suspect]
     Indication: B-CELL LYMPHOMA
  5. PREDNISOLONE [Suspect]
  6. ADRIAMYCIN [Suspect]
     Indication: B-CELL LYMPHOMA
  7. VINCRISTINE [Suspect]
     Indication: B-CELL LYMPHOMA
  8. RITUXIMAB [Suspect]
     Indication: B-CELL LYMPHOMA

REACTIONS (4)
  - B-cell lymphoma recurrent [Recovered/Resolved]
  - Myelodysplastic syndrome [Unknown]
  - Pneumonia [Recovered/Resolved]
  - Thrombocytopenia [Recovered/Resolved]
